FAERS Safety Report 8234987-6 (Version None)
Quarter: 2012Q1

REPORT INFORMATION
  Report Type: 
  Country: None (occurrence: None)
  Receive Date: 20120326
  Receipt Date: 20120315
  Transmission Date: 20120608
  Serious: Yes (Hospitalization)
  Sender: FDA-Public Use
  Company Number: US-ACTELION-A-NJ2012-61302

PATIENT

DRUGS (2)
  1. TRACLEER [Suspect]
     Indication: PULMONARY ARTERIAL HYPERTENSION
     Dosage: UNK
     Route: 048
     Dates: start: 20091215
  2. CALCIUM CHANNEL BLOCKERS [Concomitant]

REACTIONS (5)
  - AIR EMBOLISM [None]
  - RENAL DISORDER [None]
  - TRANSFUSION [None]
  - CELLULITIS [None]
  - DECUBITUS ULCER [None]
